FAERS Safety Report 22348865 (Version 2)
Quarter: 2023Q4

REPORT INFORMATION
  Report Type: Report from Study
  Country: US (occurrence: US)
  Receive Date: 20230522
  Receipt Date: 20231018
  Transmission Date: 20240110
  Serious: Yes (Other)
  Sender: FDA-Public Use
  Company Number: US-ABBVIE-5173975

PATIENT
  Sex: Male

DRUGS (1)
  1. VENCLEXTA [Suspect]
     Active Substance: VENETOCLAX
     Indication: Chronic lymphocytic leukaemia
     Dosage: TAKE FOUR TABLETS BY MOUTH ONCE DAILY WITH FOOD AND A FULL GLASS OF WATER?FORM STRENGTH: 100 MILL...
     Route: 048

REACTIONS (3)
  - Skin cancer [Recovering/Resolving]
  - White blood cell count decreased [Recovering/Resolving]
  - Procedural pain [Recovering/Resolving]

NARRATIVE: CASE EVENT DATE: 20230101
